FAERS Safety Report 12422360 (Version 2)
Quarter: 2016Q2

REPORT INFORMATION
  Report Type: Spontaneous
  Country: TR (occurrence: TR)
  Receive Date: 20160601
  Receipt Date: 20160607
  Transmission Date: 20160815
  Serious: Yes (Hospitalization)
  Sender: FDA-Public Use
  Company Number: TR-ROCHE-1766863

PATIENT
  Age: 44 Year
  Sex: Female

DRUGS (2)
  1. TAVANIC [Concomitant]
     Active Substance: LEVOFLOXACIN
     Route: 065
  2. TAMIFLU [Suspect]
     Active Substance: OSELTAMIVIR PHOSPHATE
     Indication: H1N1 INFLUENZA
     Dosage: 3X10 DROPS WAS INITIATED.
     Route: 065

REACTIONS (1)
  - Delirium [Recovered/Resolved]
